FAERS Safety Report 4514584-6 (Version None)
Quarter: 2004Q3

REPORT INFORMATION
  Report Type: 
  Country: None (occurrence: None)
  Receive Date: 20040927
  Receipt Date: 20040602
  Transmission Date: 20050211
  Serious: No
  Sender: FDA-Public Use
  Company Number: US078673

PATIENT
  Age: 44 Year
  Sex: Female

DRUGS (4)
  1. NEULASTA [Suspect]
     Indication: CHEMOTHERAPY
     Dosage: 6 MG, 1 IN 1 DAYS, SC
     Route: 058
     Dates: start: 20040501
  2. EPIRUBICIN [Concomitant]
  3. FLUOROURACIL [Concomitant]
  4. CYCLOPHOSPHAMIDE [Concomitant]

REACTIONS (5)
  - DYSPNOEA [None]
  - NAUSEA [None]
  - RASH [None]
  - SWOLLEN TONGUE [None]
  - VOMITING [None]
